FAERS Safety Report 5099005-X (Version None)
Quarter: 2006Q3

REPORT INFORMATION
  Report Type: 
  Country: None (occurrence: None)
  Receive Date: 20060731
  Receipt Date: 20050823
  Transmission Date: 20061208
  Serious: Yes (Life-Threatening, Hospitalization)
  Sender: FDA-Public Use
  Company Number: US-2005-017401

PATIENT
  Age: 32 Year
  Sex: Male
  Weight: 86.2 kg

DRUGS (3)
  1. MAGNEVIST [Suspect]
     Indication: NUCLEAR MAGNETIC RESONANCE IMAGING BRAIN
     Dosage: 15 ML, 1 DOSE, INTRAVENOUS
     Route: 042
     Dates: start: 20050823, end: 20050823
  2. DARVOCET (DEXTROPROPOXYPHENE HYDROCHLORIDE) [Concomitant]
  3. TOPEX [Concomitant]

REACTIONS (10)
  - ANAPHYLACTIC SHOCK [None]
  - BLOOD PRESSURE IMMEASURABLE [None]
  - CONJUNCTIVITIS [None]
  - DYSPNOEA [None]
  - HYPERSENSITIVITY [None]
  - HYPOAESTHESIA [None]
  - LOSS OF CONSCIOUSNESS [None]
  - NAUSEA [None]
  - VISION BLURRED [None]
  - VOMITING [None]
